FAERS Safety Report 6009073-6 (Version None)
Quarter: 2008Q4

REPORT INFORMATION
  Report Type: 
  Country: None (occurrence: None)
  Receive Date: 20081216
  Receipt Date: 20081202
  Transmission Date: 20090506
  Serious: Yes (Hospitalization)
  Sender: FDA-Public Use
  Company Number: 232482K08USA

PATIENT
  Age: 62 Year
  Sex: Female

DRUGS (8)
  1. REBIF [Suspect]
     Indication: MULTIPLE SCLEROSIS
     Dosage: 44 MCG, 3 IN 1 WEEKS,  SUBCUTANEOUS
     Route: 058
     Dates: start: 20060118
  2. XANAX [Concomitant]
  3. LEXAPRO [Concomitant]
  4. FLEXERIL [Concomitant]
  5. JANUVIA (DRUG USED IN DIABETES) [Concomitant]
  6. INSULIN (INSULIN) [Concomitant]
  7. UNSPECIFIED ASTHMA MEDICATION (ANTI-ASTHMATICS) [Concomitant]
  8. OXYGEN (OXYGEN) [Concomitant]

REACTIONS (3)
  - BLOOD GLUCOSE INCREASED [None]
  - MUSCULAR WEAKNESS [None]
  - POST PROCEDURAL HAEMORRHAGE [None]
